FAERS Safety Report 19575205 (Version 1)
Quarter: 2021Q3

REPORT INFORMATION
  Report Type: Spontaneous
  Country: US (occurrence: US)
  Receive Date: 20210716
  Receipt Date: 20210716
  Transmission Date: 20211014
  Serious: No
  Sender: FDA-Public Use
  Company Number: None

PATIENT
  Age: 30 Year
  Sex: Female
  Weight: 61 kg

DRUGS (1)
  1. CASIRIVIMAB (600 MG) AND IMDEVIMAB (600 MG) [Suspect]
     Active Substance: CASIRIVIMAB\IMDEVIMAB
     Indication: COVID-19
     Dosage: ?          OTHER FREQUENCY:ONCE;?
     Route: 042

REACTIONS (5)
  - Nausea [None]
  - Flushing [None]
  - Pharyngeal swelling [None]
  - Blood pressure increased [None]
  - Feeling jittery [None]

NARRATIVE: CASE EVENT DATE: 20210716
